FAERS Safety Report 8572979-8 (Version None)
Quarter: 2012Q3

REPORT INFORMATION
  Report Type: 
  Country: None (occurrence: None)
  Receive Date: 20120806
  Receipt Date: 20120801
  Transmission Date: 20120928
  Serious: Yes (Life-Threatening)
  Sender: FDA-Public Use
  Company Number: US-ASTRAZENECA-2012SE39090

PATIENT
  Age: 83 Year
  Sex: Male

DRUGS (3)
  1. SYMBICORT [Suspect]
     Dosage: 160/4.5 MCG DAILY
     Route: 055
  2. NEXIUM [Suspect]
     Route: 048
  3. SEROQUEL [Suspect]
     Indication: NERVOUS SYSTEM DISORDER
     Route: 048

REACTIONS (5)
  - DEPRESSION [None]
  - OFF LABEL USE [None]
  - NEOPLASM MALIGNANT [None]
  - MALAISE [None]
  - WEIGHT DECREASED [None]
